APPROVED DRUG PRODUCT: TECFIDERA
Active Ingredient: DIMETHYL FUMARATE
Strength: 120MG
Dosage Form/Route: CAPSULE, DELAYED RELEASE;ORAL
Application: N204063 | Product #001 | TE Code: AB
Applicant: BIOGEN INC
Approved: Mar 27, 2013 | RLD: Yes | RS: No | Type: RX

PATENTS:
Patent 8399514 | Expires: Feb 7, 2028
Patent 10391160 | Expires: Mar 13, 2035
Patent 10959972 | Expires: Nov 16, 2035
Patent 10555993 | Expires: Mar 13, 2035
Patent 11129806 | Expires: Nov 16, 2035
Patent 10994003 | Expires: Mar 13, 2035
Patent 11007166 | Expires: Nov 16, 2035
Patent 11007167 | Expires: Nov 16, 2035
Patent 11246850 | Expires: Nov 16, 2035